FAERS Safety Report 20535194 (Version 1)
Quarter: 2022Q1

REPORT INFORMATION
  Report Type: Spontaneous
  Country: NL (occurrence: NL)
  Receive Date: 20220302
  Receipt Date: 20220302
  Transmission Date: 20220424
  Serious: Yes (Other)
  Sender: FDA-Public Use
  Company Number: None

PATIENT
  Age: 73 Year
  Sex: Male
  Weight: 82 kg

DRUGS (4)
  1. CLINDAMYCIN [Suspect]
     Active Substance: CLINDAMYCIN
     Indication: Stomatitis
     Dosage: 1800 MILLIGRAM DAILY; 3 X PER DAY 2 PIECES,CLINDAMYCIN CAPSULE 300MG / BRAND NAME NOT SPECIFIED,THER
     Dates: start: 20220126
  2. CLINDAMYCIN [Suspect]
     Active Substance: CLINDAMYCIN
     Indication: Abscess oral
  3. ACETAMINOPHEN\CODEINE PHOSPHATE [Concomitant]
     Active Substance: ACETAMINOPHEN\CODEINE PHOSPHATE
     Dosage: 1000/20 MG,PARACETAMOL/CODEINE SUPPOSITORY 1000/20MG / BRAND NAME NOT SPECIFIED,THERAPY START DATE A
  4. AMITRIPTYLINE [Concomitant]
     Active Substance: AMITRIPTYLINE
     Dosage: 10 MG, AMITRIPTYLINE HCL TABLET 10MG / BRAND NAME NOT SPECIFIED, THERAPY START DATE AND END DATE : A

REACTIONS (1)
  - Chest pain [Not Recovered/Not Resolved]

NARRATIVE: CASE EVENT DATE: 20220128
